FAERS Safety Report 10043200 (Version 2)
Quarter: 2014Q4

REPORT INFORMATION
  Report Type: Spontaneous
  Country: FR (occurrence: FR)
  Receive Date: 20140328
  Receipt Date: 20141104
  Transmission Date: 20150528
  Serious: Yes (Hospitalization)
  Sender: FDA-Public Use
  Company Number: FR-ROCHE-1372134

PATIENT
  Age: 52 Year
  Sex: Male

DRUGS (5)
  1. FLUDARA [Suspect]
     Active Substance: FLUDARABINE PHOSPHATE
     Indication: LYMPHOCYTIC LYMPHOMA
     Route: 048
     Dates: start: 201306, end: 201310
  2. ZELITREX [Concomitant]
     Active Substance: VALACYCLOVIR HYDROCHLORIDE
  3. MABTHERA [Suspect]
     Active Substance: RITUXIMAB
     Indication: LYMPHOCYTIC LYMPHOMA
     Route: 042
     Dates: start: 201306, end: 201310
  4. ENDOXAN [Suspect]
     Active Substance: CYCLOPHOSPHAMIDE
     Indication: LYMPHOCYTIC LYMPHOMA
     Route: 048
     Dates: start: 201306, end: 201310
  5. BACTRIM [Concomitant]
     Active Substance: SULFAMETHOXAZOLE\TRIMETHOPRIM

REACTIONS (1)
  - Acute polyneuropathy [Recovered/Resolved]

NARRATIVE: CASE EVENT DATE: 20131015
